FAERS Safety Report 9415451 (Version 2)
Quarter: 2013Q3

REPORT INFORMATION
  Report Type: Spontaneous
  Country: US (occurrence: US)
  Receive Date: 20130723
  Receipt Date: 20130826
  Transmission Date: 20140515
  Serious: No
  Sender: FDA-Public Use
  Company Number: US-PFIZER INC-2013150031

PATIENT
  Age: 69 Year
  Sex: Female
  Weight: 90 kg

DRUGS (11)
  1. LYRICA [Suspect]
     Indication: FIBROMYALGIA
     Dosage: 225 MG, 2X/DAY
     Dates: start: 20110730, end: 201307
  2. LYRICA [Suspect]
     Indication: MULTIPLE SCLEROSIS
  3. OMEPRAZOLE [Concomitant]
     Indication: GASTRIC DISORDER
     Dosage: 40 MG, 1X/DAY
     Route: 048
     Dates: start: 20110414
  4. OMEPRAZOLE [Concomitant]
     Indication: PEPTIC ULCER
     Dosage: UNK
  5. ONDANSETRON HYDROCHLORIDE [Concomitant]
     Dosage: 1 DF, AS NEEDED
     Route: 048
     Dates: start: 20120612
  6. PROMETHAZINE W/CODEINE [Concomitant]
     Indication: BRONCHITIS
     Dosage: ONE TO TWO TSP EVERY 6 TO 8 HOURS , AS NEEDED
     Route: 048
     Dates: start: 20130225
  7. ALPRAZOLAM [Concomitant]
     Indication: ANXIETY
     Dosage: 0.5 MG, 2X/DAY AS NEEDED
     Route: 048
  8. CYMBALTA [Concomitant]
     Indication: FIBROMYALGIA
     Dosage: 1 DF, 1X/DAY
     Route: 048
  9. OXYBUTYNIN CHLORIDE [Concomitant]
     Indication: HYPERTONIC BLADDER
     Dosage: 1 DF, 2X/DAY
     Route: 048
     Dates: start: 20111107
  10. HYDROCODONE W/ACETAMINOPHEN [Concomitant]
     Indication: LIGAMENT SPRAIN
     Dosage: 1 DF(EVERY 6 HOURS WITH FOOD ), AS NEEDED
     Route: 048
     Dates: start: 20130103
  11. LOSARTAN POTASSIUM W/HYDROCHLOROTHIAZIDE [Concomitant]
     Indication: PEPTIC ULCER
     Dosage: 1 DF, 1X/DAY
     Route: 048
     Dates: start: 20110414

REACTIONS (6)
  - Drug withdrawal syndrome [Not Recovered/Not Resolved]
  - Pyrexia [Not Recovered/Not Resolved]
  - Nausea [Not Recovered/Not Resolved]
  - Pain [Not Recovered/Not Resolved]
  - Dizziness [Not Recovered/Not Resolved]
  - Vomiting [Not Recovered/Not Resolved]
